FAERS Safety Report 7156220-9 (Version None)
Quarter: 2010Q4

REPORT INFORMATION
  Report Type: 
  Country: None (occurrence: None)
  Receive Date: 20101214
  Receipt Date: 20101208
  Transmission Date: 20110411
  Serious: No
  Sender: FDA-Public Use
  Company Number: KR-JNJFOC-20101203237

PATIENT
  Age: 73 Year
  Sex: Male

DRUGS (2)
  1. DURAGESIC-100 [Suspect]
     Indication: PAIN MANAGEMENT
     Dosage: APPLIED HALF A PATCH
     Route: 062
  2. DURAGESIC-100 [Suspect]
     Dosage: APPLIED FULL PATCH
     Route: 062

REACTIONS (2)
  - DRUG ADMINISTRATION ERROR [None]
  - THIRST [None]
